FAERS Safety Report 5342590-0 (Version None)
Quarter: 2007Q2

REPORT INFORMATION
  Report Type: 
  Country: None (occurrence: None)
  Receive Date: 20070601
  Receipt Date: 20061127
  Transmission Date: 20071010
  Serious: No
  Sender: FDA-Public Use
  Company Number: A0628738A

PATIENT
  Age: 34 Year
  Sex: Male

DRUGS (1)
  1. AUGMENTIN XR [Suspect]
     Dosage: 2TAB TWICE PER DAY
     Route: 048

REACTIONS (2)
  - DIARRHOEA [None]
  - TOOTH DISCOLOURATION [None]
